FAERS Safety Report 5326518-5 (Version None)
Quarter: 2007Q2

REPORT INFORMATION
  Report Type: 
  Country: None (occurrence: None)
  Receive Date: 20070516
  Receipt Date: 20070511
  Transmission Date: 20071010
  Serious: Yes (Other)
  Sender: FDA-Public Use
  Company Number: NL-ASTRAZENECA-2007AC00453

PATIENT
  Age: 26446 Day
  Sex: Male

DRUGS (5)
  1. CRESTOR [Suspect]
     Indication: PROPHYLAXIS
     Route: 048
     Dates: start: 20061214, end: 20070308
  2. ENALAPRIL [Concomitant]
     Dates: start: 20060703
  3. TIMOLOL MALEATE [Concomitant]
     Route: 047
     Dates: start: 19980619
  4. DICLOFENAC [Concomitant]
     Indication: PAIN
     Dates: start: 20061123
  5. OMEPRAZOLE [Concomitant]
     Indication: ILL-DEFINED DISORDER
     Dates: start: 20061123

REACTIONS (1)
  - VASCULITIS [None]
